FAERS Safety Report 6558114-6 (Version None)
Quarter: 2010Q1

REPORT INFORMATION
  Report Type: 
  Country: None (occurrence: None)
  Receive Date: 20100129
  Receipt Date: 20100125
  Transmission Date: 20100710
  Serious: Yes (Life-Threatening, Hospitalization)
  Sender: FDA-Public Use
  Company Number: A0841773A

PATIENT
  Age: 66 Year
  Sex: Female
  Weight: 87.9 kg

DRUGS (1)
  1. PAZOPANIB [Suspect]
     Dosage: 800MG PER DAY
     Route: 048
     Dates: start: 20091013, end: 20091026

REACTIONS (7)
  - CONFUSIONAL STATE [None]
  - DYSARTHRIA [None]
  - HEADACHE [None]
  - HYPERTENSION [None]
  - LYMPHOPENIA [None]
  - NAUSEA [None]
  - VOMITING [None]
